FAERS Safety Report 14554284 (Version 1)
Quarter: 2018Q1

REPORT INFORMATION
  Report Type: Spontaneous
  Country: US (occurrence: US)
  Receive Date: 20180218
  Receipt Date: 20180218
  Transmission Date: 20180509
  Serious: Yes (Life-Threatening, Hospitalization, Disabling)
  Sender: FDA-Public Use
  Company Number: None

PATIENT
  Sex: Female
  Weight: 74.84 kg

DRUGS (1)
  1. PARAGARD T 380A [Suspect]
     Active Substance: COPPER

REACTIONS (10)
  - Rash [None]
  - Embedded device [None]
  - Weight decreased [None]
  - Joint swelling [None]
  - Complication of device removal [None]
  - Anaemia [None]
  - Abdominal pain [None]
  - Pigmentation disorder [None]
  - Device toxicity [None]
  - Muscle spasms [None]

NARRATIVE: CASE EVENT DATE: 20141215
